FAERS Safety Report 5733946-2 (Version None)
Quarter: 2008Q2

REPORT INFORMATION
  Report Type: 
  Country: None (occurrence: None)
  Receive Date: 20080509
  Receipt Date: 20080428
  Transmission Date: 20081010
  Serious: Yes (Other)
  Sender: FDA-Public Use
  Company Number: BR-PFIZER INC-2008037657

PATIENT
  Sex: Female
  Weight: 67 kg

DRUGS (6)
  1. FRONTAL [Suspect]
     Indication: DEPRESSION
     Route: 048
  2. FRONTAL [Suspect]
     Indication: PANIC DISORDER
  3. CAPTOPRIL [Concomitant]
     Route: 065
  4. CARDIZEM [Concomitant]
     Route: 065
  5. COSOPT [Concomitant]
     Route: 065
  6. PURAN T4 [Concomitant]
     Route: 065

REACTIONS (2)
  - DYSGEUSIA [None]
  - THYROID NEOPLASM [None]
